FAERS Safety Report 13949657 (Version 1)
Quarter: 2017Q3

REPORT INFORMATION
  Report Type: Spontaneous
  Country: EG (occurrence: EG)
  Receive Date: 20170908
  Receipt Date: 20170908
  Transmission Date: 20171128
  Serious: Yes (Other)
  Sender: FDA-Public Use
  Company Number: EG-PFIZER INC-2017389387

PATIENT
  Sex: Female

DRUGS (2)
  1. SULPERAZONE [Suspect]
     Active Substance: CEFOPERAZONE SODIUM\SULBACTAM SODIUM
     Indication: PYREXIA
     Dosage: 2.5 G, 2X/DAY
  2. ZYVOX [Suspect]
     Active Substance: LINEZOLID
     Dosage: UNK

REACTIONS (2)
  - International normalised ratio increased [Recovered/Resolved]
  - Haemorrhage [Unknown]
